FAERS Safety Report 7207635-1 (Version None)
Quarter: 2011Q1

REPORT INFORMATION
  Report Type: 
  Country: None (occurrence: None)
  Receive Date: 20110103
  Receipt Date: 20101229
  Transmission Date: 20110831
  Serious: Yes (Hospitalization, Other)
  Sender: FDA-Public Use
  Company Number: FR-PFIZER INC-2010180749

PATIENT
  Age: 57 Year
  Sex: Female

DRUGS (4)
  1. SUTENT [Suspect]
     Indication: SMALL INTESTINE CARCINOMA
     Dosage: 50 MG, DAILY, 4-WEEK CYCLES WITH 2-WEEK DISCONTINUATION
     Route: 048
     Dates: start: 20100401
  2. SKENAN [Concomitant]
  3. DOLIPRANE [Concomitant]
  4. ACTISKENAN [Concomitant]

REACTIONS (3)
  - GENERAL PHYSICAL HEALTH DETERIORATION [None]
  - HYPOTHYROIDISM [None]
  - PNEUMOPERITONEUM [None]
